FAERS Safety Report 7503136-1 (Version None)
Quarter: 2011Q2

REPORT INFORMATION
  Report Type: 
  Country: None (occurrence: None)
  Receive Date: 20110525
  Receipt Date: 20110518
  Transmission Date: 20111010
  Serious: No
  Sender: FDA-Public Use
  Company Number: US-PFIZER INC-2011108000

PATIENT

DRUGS (1)
  1. ZYVOX [Suspect]
     Dosage: UNK

REACTIONS (1)
  - CHROMATURIA [None]
